FAERS Safety Report 6207639-1 (Version None)
Quarter: 2009Q2

REPORT INFORMATION
  Report Type: 
  Country: None (occurrence: None)
  Receive Date: 20090528
  Receipt Date: 20090519
  Transmission Date: 20091009
  Serious: Yes (Other)
  Sender: FDA-Public Use
  Company Number: FR-B.I. PHARMACEUTICALS,INC./RIDGEFIELD-2009-FF-00350FF

PATIENT
  Sex: Male

DRUGS (2)
  1. MECIR LP 0.4 [Suspect]
     Indication: BENIGN PROSTATIC HYPERPLASIA
     Dosage: .4MG
     Route: 048
     Dates: start: 20070201
  2. EXFORGE [Suspect]
     Indication: HYPERTENSION
     Dosage: 5MG/160MG
     Route: 048
     Dates: start: 20070201

REACTIONS (1)
  - TENDON RUPTURE [None]
